FAERS Safety Report 18591445 (Version 2)
Quarter: 2020Q4

REPORT INFORMATION
  Report Type: Report from Study
  Country: CA (occurrence: CA)
  Receive Date: 20201208
  Receipt Date: 20201215
  Transmission Date: 20210114
  Serious: Yes (Hospitalization)
  Sender: FDA-Public Use
  Company Number: CA-JNJFOC-20201207113

PATIENT
  Age: 16 Year
  Sex: Female
  Weight: 43.4 kg

DRUGS (2)
  1. REMICADE [Suspect]
     Active Substance: INFLIXIMAB
     Indication: CROHN^S DISEASE
     Route: 042
     Dates: start: 20201023
  2. REMICADE [Suspect]
     Active Substance: INFLIXIMAB
     Dosage: 400 MG. ON 07-DEC-2020, THE PATIENT RECEIVED INFLIXIMAB RECOMBINANT
     Route: 042
     Dates: start: 20201207

REACTIONS (3)
  - Diarrhoea [Recovered/Resolved]
  - Product use issue [Unknown]
  - Off label use [Unknown]

NARRATIVE: CASE EVENT DATE: 20201125
